FAERS Safety Report 8387487-7 (Version None)
Quarter: 2012Q2

REPORT INFORMATION
  Report Type: 
  Country: None (occurrence: None)
  Receive Date: 20120525
  Receipt Date: 20120521
  Transmission Date: 20120825
  Serious: Yes (Other)
  Sender: FDA-Public Use
  Company Number: PHHY2012AU027517

PATIENT
  Sex: Male

DRUGS (9)
  1. LEVOTHYROXINE SODIUM [Concomitant]
  2. INDAPAMIDE [Concomitant]
  3. VITAMIN D [Concomitant]
  4. CALCIUM CARBONATE [Concomitant]
  5. METFORMIN HCL [Concomitant]
  6. PERINDOPRIL ERBUMINE [Concomitant]
  7. ZYLOPRIM [Concomitant]
  8. TASIGNA [Suspect]
     Indication: CHRONIC MYELOID LEUKAEMIA
     Dosage: 400 MG, BID
     Route: 048
     Dates: start: 20120305, end: 20120323
  9. DIAMICRON [Concomitant]

REACTIONS (3)
  - PRURITUS [None]
  - PALPITATIONS [None]
  - BLOOD GLUCOSE INCREASED [None]
